FAERS Safety Report 6287611-6 (Version None)
Quarter: 2009Q3

REPORT INFORMATION
  Report Type: 
  Country: None (occurrence: None)
  Receive Date: 20090727
  Receipt Date: 20090727
  Transmission Date: 20100115
  Serious: No
  Sender: FDA-Public Use
  Company Number: None

PATIENT
  Age: 47 Year
  Sex: Female
  Weight: 58.9676 kg

DRUGS (1)
  1. NUVIGIL [Suspect]
     Dosage: 1 TABLET DAILY (MORNING)

REACTIONS (1)
  - DYSPNOEA [None]
